FAERS Safety Report 15984263 (Version 2)
Quarter: 2019Q2

REPORT INFORMATION
  Report Type: Spontaneous
  Country: US (occurrence: US)
  Receive Date: 20190220
  Receipt Date: 20190425
  Transmission Date: 20190711
  Serious: No
  Sender: FDA-Public Use
  Company Number: US-BIOGEN-2019BI00698729

PATIENT
  Sex: Female

DRUGS (1)
  1. TYSABRI [Suspect]
     Active Substance: NATALIZUMAB
     Indication: MULTIPLE SCLEROSIS
     Route: 050

REACTIONS (7)
  - Stress [Unknown]
  - Memory impairment [Unknown]
  - Product dose omission [Unknown]
  - Multiple sclerosis relapse [Unknown]
  - Energy increased [Unknown]
  - Panic attack [Unknown]
  - Loss of consciousness [Unknown]
